FAERS Safety Report 17194319 (Version 1)
Quarter: 2019Q4

REPORT INFORMATION
  Report Type: Report from Study
  Country: None (occurrence: US)
  Receive Date: 20191224
  Receipt Date: 20191224
  Transmission Date: 20200122
  Serious: Yes (Other)
  Sender: FDA-Public Use
  Company Number: US-ABBVIE-19K-163-2819708-00

PATIENT
  Sex: Male
  Weight: 46.31 kg

DRUGS (1)
  1. HUMIRA [Suspect]
     Active Substance: ADALIMUMAB
     Indication: PSORIATIC ARTHROPATHY
     Dosage: CITRATE FREE
     Route: 058

REACTIONS (4)
  - Limb injury [Unknown]
  - Joint injury [Unknown]
  - Psoriasis [Recovered/Resolved]
  - Wrist fracture [Recovering/Resolving]
